FAERS Safety Report 13449513 (Version 1)
Quarter: 2017Q2

REPORT INFORMATION
  Report Type: Other
  Country: CA (occurrence: CA)
  Receive Date: 20170417
  Receipt Date: 20170417
  Transmission Date: 20170830
  Serious: Yes (Life-Threatening, Hospitalization, Other)
  Sender: FDA-Public Use
  Company Number: CA-APOTEX-2017AP009904

PATIENT
  Age: 45 Year
  Sex: Male

DRUGS (5)
  1. QUETIAPINE. [Concomitant]
     Active Substance: QUETIAPINE
     Indication: PRODUCT USED FOR UNKNOWN INDICATION
     Route: 065
  2. CAFFEINE. [Concomitant]
     Active Substance: CAFFEINE
     Indication: PRODUCT USED FOR UNKNOWN INDICATION
     Route: 065
  3. VENLAFAXINE [Concomitant]
     Active Substance: VENLAFAXINE HYDROCHLORIDE
     Indication: PRODUCT USED FOR UNKNOWN INDICATION
     Route: 065
  4. APO-FENTANYL MATRIX [Suspect]
     Active Substance: FENTANYL
     Indication: DRUG USE DISORDER
     Dosage: UNK
     Route: 045
  5. NAPROXEN. [Concomitant]
     Active Substance: NAPROXEN
     Indication: PRODUCT USED FOR UNKNOWN INDICATION
     Route: 065

REACTIONS (10)
  - Blood pressure diastolic decreased [Unknown]
  - Toxicity to various agents [Unknown]
  - Drug use disorder [Unknown]
  - Diffuse alveolar damage [Unknown]
  - Electrocardiogram ST segment elevation [Unknown]
  - Heart rate increased [Unknown]
  - Coma scale abnormal [Unknown]
  - Respiratory failure [Unknown]
  - Incorrect route of drug administration [Unknown]
  - Circulatory collapse [Unknown]
